FAERS Safety Report 8047689-6 (Version None)
Quarter: 2012Q1

REPORT INFORMATION
  Report Type: 
  Country: None (occurrence: None)
  Receive Date: 20120116
  Receipt Date: 20120105
  Transmission Date: 20120608
  Serious: Yes (Hospitalization, Other)
  Sender: FDA-Public Use
  Company Number: FR-ELI_LILLY_AND_COMPANY-FR201201001587

PATIENT
  Sex: Female

DRUGS (11)
  1. PLAVIX [Concomitant]
     Indication: CARDIOVASCULAR EVENT PROPHYLAXIS
     Dosage: 75 MG, QD
     Route: 048
  2. FUROSEMIDE [Concomitant]
     Dosage: 20 MG, QD
     Route: 048
  3. ACETAMINOPHEN [Concomitant]
     Dosage: 1000 MG, QID
     Route: 048
  4. LACTEOL [Concomitant]
     Dosage: UNK
     Route: 048
  5. METEOSPASMYL                       /02143701/ [Concomitant]
     Dosage: 3 DF, QD
     Route: 048
  6. STEROGYL [Concomitant]
     Dosage: UNK
     Route: 048
  7. CORDARONE [Concomitant]
     Dosage: UNK
     Route: 048
  8. LEVOTHYROXINE SODIUM [Concomitant]
     Indication: THYROID DISORDER
     Dosage: 87.5 UG, QD
     Route: 048
  9. RABEPRAZOLE SODIUM [Concomitant]
     Dosage: 10 MG, QD
     Route: 048
  10. FORTEO [Suspect]
     Indication: OSTEOPOROSIS
     Dosage: 20 UG, QD
     Route: 058
     Dates: start: 20110201
  11. SPASFON LYOC [Concomitant]
     Dosage: 80 MG, BID
     Route: 048

REACTIONS (5)
  - DRUG INEFFECTIVE [None]
  - VITAMIN D DECREASED [None]
  - PUBIS FRACTURE [None]
  - FALL [None]
  - RENAL FAILURE [None]
